FAERS Safety Report 25797401 (Version 1)
Quarter: 2025Q3

REPORT INFORMATION
  Report Type: Spontaneous
  Country: US (occurrence: US)
  Receive Date: 20250912
  Receipt Date: 20250912
  Transmission Date: 20251021
  Serious: Yes (Other)
  Sender: AMGEN
  Company Number: US-AMGEN-USASP2025177829

PATIENT

DRUGS (4)
  1. INFLIXIMAB [Suspect]
     Active Substance: INFLIXIMAB
     Indication: Crohn^s disease
     Route: 065
  2. INFLIXIMAB [Suspect]
     Active Substance: INFLIXIMAB
     Indication: Colitis ulcerative
  3. ADALIMUMAB [Suspect]
     Active Substance: ADALIMUMAB
     Indication: Crohn^s disease
     Route: 065
  4. ADALIMUMAB [Suspect]
     Active Substance: ADALIMUMAB
     Indication: Colitis ulcerative

REACTIONS (14)
  - Colitis ulcerative [Unknown]
  - Crohn^s disease [Unknown]
  - Stillbirth [Unknown]
  - Eclampsia [Unknown]
  - Foetal distress syndrome [Unknown]
  - Impaired healing [Unknown]
  - Vulvovaginal injury [Unknown]
  - Prolonged labour [Unknown]
  - Pre-eclampsia [Unknown]
  - Maternal exposure during pregnancy [Unknown]
  - Puerperal infection [Unknown]
  - Premature delivery [Unknown]
  - Breech presentation [Unknown]
  - Labour augmentation [Unknown]
